FAERS Safety Report 14770287 (Version 2)
Quarter: 2018Q2

REPORT INFORMATION
  Report Type: Spontaneous
  Country: US (occurrence: US)
  Receive Date: 20180417
  Receipt Date: 20180515
  Transmission Date: 20180711
  Serious: No
  Sender: FDA-Public Use
  Company Number: US-NEUROCRINE BIOSCIENCES INC.-2018NBI01043

PATIENT
  Age: 45 Year
  Sex: Male
  Weight: 74 kg

DRUGS (11)
  1. INGREZZA [Suspect]
     Active Substance: VALBENAZINE
     Dosage: 2 CAPSULES (80MG) IN THE MORNING AND 1 CAPSULE (40MG) IN THE EVENING
     Route: 048
     Dates: start: 20180222, end: 2018
  2. SAPHRIS [Concomitant]
     Active Substance: ASENAPINE MALEATE
  3. TEMAZEPAM. [Concomitant]
     Active Substance: TEMAZEPAM
  4. INGREZZA [Suspect]
     Active Substance: VALBENAZINE
     Route: 048
     Dates: start: 201712
  5. CLOZAPINE. [Concomitant]
     Active Substance: CLOZAPINE
  6. INGREZZA [Suspect]
     Active Substance: VALBENAZINE
     Indication: TARDIVE DYSKINESIA
     Route: 048
     Dates: start: 20171127, end: 201712
  7. HALDOL [Concomitant]
     Active Substance: HALOPERIDOL
  8. MELATONIN [Concomitant]
     Active Substance: MELATONIN
  9. VITAMIN D3 [Concomitant]
     Active Substance: CHOLECALCIFEROL
  10. ABILIFY [Concomitant]
     Active Substance: ARIPIPRAZOLE
  11. MIRTAZAPINE. [Concomitant]
     Active Substance: MIRTAZAPINE

REACTIONS (6)
  - Muscular weakness [Recovered/Resolved]
  - Hypoaesthesia [Recovered/Resolved]
  - Blood creatine phosphokinase increased [Recovered/Resolved]
  - Hypokinesia [Recovered/Resolved]
  - Bradykinesia [Recovered/Resolved]
  - Off label use [Recovered/Resolved]

NARRATIVE: CASE EVENT DATE: 201802
